FAERS Safety Report 17971868 (Version 5)
Quarter: 2021Q1

REPORT INFORMATION
  Report Type: Spontaneous
  Country: US (occurrence: US)
  Receive Date: 20200701
  Receipt Date: 20210217
  Transmission Date: 20210419
  Serious: No
  Sender: FDA-Public Use
  Company Number: US-GLAXOSMITHKLINE-US2020AMR115412

PATIENT
  Sex: Female

DRUGS (5)
  1. ZEJULA [Suspect]
     Active Substance: NIRAPARIB
     Indication: OVARIAN CANCER
     Dosage: 100 MG
     Route: 065
     Dates: start: 20200604
  2. ZEJULA [Suspect]
     Active Substance: NIRAPARIB
     Dosage: 200 MG, QD
     Route: 048
  3. ZEJULA [Suspect]
     Active Substance: NIRAPARIB
     Dosage: 200 MG, QD
     Dates: end: 20210210
  4. ZEJULA [Suspect]
     Active Substance: NIRAPARIB
     Dosage: 200 MG
  5. ZEJULA [Suspect]
     Active Substance: NIRAPARIB
     Dosage: 100 MG

REACTIONS (7)
  - Product dose omission issue [Unknown]
  - Acne [Unknown]
  - Drug ineffective [Unknown]
  - Sluggishness [Unknown]
  - Hypersomnia [Unknown]
  - Nausea [Not Recovered/Not Resolved]
  - Abdominal distension [Unknown]
